FAERS Safety Report 9317692 (Version 1)
Quarter: 2013Q2

REPORT INFORMATION
  Report Type: Spontaneous
  Country: IT (occurrence: IT)
  Receive Date: 20130530
  Receipt Date: 20130530
  Transmission Date: 20140414
  Serious: Yes (Other)
  Sender: FDA-Public Use
  Company Number: IT-PFIZER INC-2013161581

PATIENT
  Age: 75 Year
  Sex: Male

DRUGS (4)
  1. VIAGRA [Suspect]
     Indication: ERECTILE DYSFUNCTION
     Dosage: 25 MG, AS NEEDED
     Route: 048
     Dates: start: 2010
  2. VIAGRA [Suspect]
     Dosage: 50 MG, AS NEEDED
  3. VIAGRA [Suspect]
     Dosage: 75 OR 100MG, AS NEEDED
  4. TERAPROST [Concomitant]
     Indication: BENIGN PROSTATIC HYPERPLASIA
     Dosage: 5 MG OR 2.5 MG, AS NEEDED
     Dates: start: 2008

REACTIONS (1)
  - Polymyalgia rheumatica [Not Recovered/Not Resolved]
